FAERS Safety Report 13779790 (Version 1)
Quarter: 2017Q3

REPORT INFORMATION
  Report Type: Report from Study
  Country: US (occurrence: US)
  Receive Date: 20170723
  Receipt Date: 20170723
  Transmission Date: 20171127
  Serious: Yes (Other)
  Sender: FDA-Public Use
  Company Number: US-TORRENT-00003209

PATIENT
  Age: 55 Year
  Sex: Female

DRUGS (4)
  1. MELOXICAM. [Suspect]
     Active Substance: MELOXICAM
  2. TOPIRAMATE. [Suspect]
     Active Substance: TOPIRAMATE
  3. HYDROXYZINE/HYDROXYZINE HYDROCHLORIDE [Suspect]
     Active Substance: HYDROXYZINE HYDROCHLORIDE
  4. TRAMADOL. [Suspect]
     Active Substance: TRAMADOL

REACTIONS (3)
  - Rash papular [Recovered/Resolved]
  - Nodular rash [Recovered/Resolved]
  - Lymphomatoid papulosis [Recovered/Resolved]
